FAERS Safety Report 23427779 (Version 1)
Quarter: 2024Q1

REPORT INFORMATION
  Report Type: Spontaneous
  Country: FI (occurrence: FI)
  Receive Date: 20240122
  Receipt Date: 20240122
  Transmission Date: 20240410
  Serious: Yes (Other)
  Sender: FDA-Public Use
  Company Number: None

PATIENT
  Age: 61 Year
  Sex: Female

DRUGS (1)
  1. AMLODIPINE [Suspect]
     Active Substance: AMLODIPINE BESYLATE
     Indication: Hypertension
     Dosage: 5 MILLIGRAM, QD (1 TABLET IN THE MORNING AMLODIPINE)
     Route: 048
     Dates: start: 20231130, end: 20231225

REACTIONS (10)
  - Syncope [Recovered/Resolved]
  - Confusional state [Recovered/Resolved]
  - Dysaesthesia [Recovered/Resolved]
  - Taste disorder [Recovered/Resolved]
  - Oedema peripheral [Recovered/Resolved]
  - Dry mouth [Recovered/Resolved]
  - Micturition disorder [Recovered/Resolved]
  - Dizziness [Recovered/Resolved]
  - Headache [Recovered/Resolved]
  - Abdominal pain [Recovered/Resolved]

NARRATIVE: CASE EVENT DATE: 20231201
